FAERS Safety Report 7599267-0 (Version None)
Quarter: 2011Q3

REPORT INFORMATION
  Report Type: 
  Country: None (occurrence: None)
  Receive Date: 20110711
  Receipt Date: 20110630
  Transmission Date: 20111222
  Serious: Yes (Life-Threatening, Hospitalization)
  Sender: FDA-Public Use
  Company Number: PL-BAYER-2011-041483

PATIENT
  Age: 74 Year
  Sex: Male

DRUGS (16)
  1. CIPRINOL [Concomitant]
  2. CEFTRIAXONE [Concomitant]
  3. ULTRAVIST 150 [Suspect]
     Indication: ANGIOGRAM
     Dosage: 20 ML, ONCE
     Route: 013
     Dates: start: 20110513, end: 20110513
  4. POLOCARD [Concomitant]
     Route: 048
  5. GLIMEPIRIDE [Concomitant]
  6. AGEN [Concomitant]
  7. BERODUAL [Concomitant]
  8. PLAVIX [Concomitant]
  9. PANTOPRAZOLE [Concomitant]
  10. METHYLPREDNISOLONE [Concomitant]
  11. KALIPOZ [Concomitant]
  12. INDAPAMIDE [Concomitant]
  13. ATORVASTATIN [Concomitant]
  14. METOCLOPRAMIDE [Concomitant]
  15. ATROVENT [Concomitant]
  16. LIGNOCAINUM HCL [Concomitant]
     Indication: ARTERIOGRAM
     Dosage: 20 ML, UNK

REACTIONS (4)
  - ANAPHYLACTIC SHOCK [None]
  - VENTRICULAR FIBRILLATION [None]
  - PULSELESS ELECTRICAL ACTIVITY [None]
  - CIRCULATORY COLLAPSE [None]
